FAERS Safety Report 12768841 (Version 1)
Quarter: 2016Q3

REPORT INFORMATION
  Report Type: Spontaneous
  Country: JP (occurrence: JP)
  Receive Date: 20160921
  Receipt Date: 20160921
  Transmission Date: 20161109
  Serious: Yes (Hospitalization)
  Sender: FDA-Public Use
  Company Number: PHJP2016JP023577

PATIENT
  Age: 89 Year
  Sex: Female

DRUGS (2)
  1. EXELON PATCH [Suspect]
     Active Substance: RIVASTIGMINE
     Indication: DEMENTIA ALZHEIMER^S TYPE
     Dosage: 4.6 MG, QD (9 MG RIVASTIGMINE BASE, PATCH 5 CM2)
     Route: 062
     Dates: start: 201512
  2. EXELON PATCH [Suspect]
     Active Substance: RIVASTIGMINE
     Dosage: 9.5 MG, QD (18 MG RIVASTIGMINE BASE, PATCH 10 CM2)
     Route: 062
     Dates: start: 201602

REACTIONS (3)
  - Fracture [Recovering/Resolving]
  - Fall [Recovering/Resolving]
  - Wrong technique in product usage process [Unknown]

NARRATIVE: CASE EVENT DATE: 201607
